FAERS Safety Report 22097118 (Version 10)
Quarter: 2025Q3

REPORT INFORMATION
  Report Type: Report from Study
  Country: AR (occurrence: AR)
  Receive Date: 20230315
  Receipt Date: 20250724
  Transmission Date: 20251020
  Serious: Yes (Hospitalization, Disabling)
  Sender: ROCHE
  Company Number: AR-ROCHE-3305157

PATIENT
  Age: 62 Year
  Sex: Male
  Weight: 71.0 kg

DRUGS (16)
  1. ATEZOLIZUMAB [Suspect]
     Active Substance: ATEZOLIZUMAB
     Indication: Hepatocellular carcinoma
     Dosage: ON 09/FEB/2023, START DATE AND END DATE OF MOST RECENT DOSE 1200 MG OF ATEZOLIZUMAB PRIOR TO AE (ADV
     Route: 042
     Dates: start: 20230209
  2. BEVACIZUMAB [Suspect]
     Active Substance: BEVACIZUMAB
     Indication: Hepatocellular carcinoma
     Route: 065
     Dates: start: 20230209
  3. ACETAMINOPHEN [Concomitant]
     Active Substance: ACETAMINOPHEN
     Dates: start: 20230209, end: 20230209
  4. CARVEDILOL [Concomitant]
     Active Substance: CARVEDILOL
  5. JARDIANCE [Concomitant]
     Active Substance: EMPAGLIFLOZIN
  6. LACTULOSE [Concomitant]
     Active Substance: LACTULOSE
  7. ATORVASTATIN [Concomitant]
     Active Substance: ATORVASTATIN
  8. RIFAXIMIN [Concomitant]
     Active Substance: RIFAXIMIN
  9. ASPIRIN [Concomitant]
     Active Substance: ASPIRIN
  10. FUROSEMIDE [Concomitant]
     Active Substance: FUROSEMIDE
  11. SPIRONOLACTONE [Concomitant]
     Active Substance: SPIRONOLACTONE
  12. SPIRONOLACTONE [Concomitant]
     Active Substance: SPIRONOLACTONE
  13. MEPREDNISONE [Concomitant]
     Active Substance: MEPREDNISONE
     Dates: start: 20230203
  14. NISTATIN [Concomitant]
     Active Substance: NYSTATIN
     Dates: start: 20230203
  15. TRIMETOPRIMA SULFAMETOXAZOL [Concomitant]
     Dates: start: 20230203
  16. METFORMIN [Concomitant]
     Active Substance: METFORMIN HYDROCHLORIDE

REACTIONS (1)
  - Hepatitis acute [Not Recovered/Not Resolved]

NARRATIVE: CASE EVENT DATE: 20230217
